FAERS Safety Report 13922362 (Version 1)
Quarter: 2017Q3

REPORT INFORMATION
  Report Type: Spontaneous
  Country: US (occurrence: US)
  Receive Date: 20170830
  Receipt Date: 20170830
  Transmission Date: 20171127
  Serious: Yes (Disabling)
  Sender: FDA-Public Use
  Company Number: US-SA-2017SA158434

PATIENT
  Sex: Female

DRUGS (13)
  1. LYRICA [Concomitant]
     Active Substance: PREGABALIN
     Dosage: 75 MG
     Route: 065
  2. TRAMADOL HYDROCHLORIDE. [Concomitant]
     Active Substance: TRAMADOL HYDROCHLORIDE
     Dosage: 50 MG
     Route: 065
  3. AUBAGIO [Suspect]
     Active Substance: TERIFLUNOMIDE
     Route: 048
     Dates: start: 201701
  4. BLACK COHOSH [Concomitant]
     Active Substance: BLACK COHOSH
     Dosage: 40 MG
     Route: 065
  5. VITAMIN D3 [Concomitant]
     Active Substance: CHOLECALCIFEROL
     Dosage: 20000 UNIT
     Route: 065
  6. LISINOPRIL. [Concomitant]
     Active Substance: LISINOPRIL
     Dosage: 30 MG
     Route: 065
  7. ATORVASTATIN [Concomitant]
     Active Substance: ATORVASTATIN
     Dosage: 10 MG
     Route: 065
  8. POTASSIUM [Concomitant]
     Active Substance: POTASSIUM
     Dosage: 500 MG
     Route: 065
  9. VESICARE [Concomitant]
     Active Substance: SOLIFENACIN SUCCINATE
     Dosage: 10 MG
     Route: 065
  10. BIOTIN [Concomitant]
     Active Substance: BIOTIN
     Dosage: 5000 MCG
     Route: 065
  11. NAPROXEN. [Concomitant]
     Active Substance: NAPROXEN
     Dosage: 500 MG
     Route: 065
  12. METFORMIN HYDROCHLORIDE. [Concomitant]
     Active Substance: METFORMIN HYDROCHLORIDE
  13. LEVOTHYROXINE. [Concomitant]
     Active Substance: LEVOTHYROXINE
     Dosage: 50 MCG
     Route: 065

REACTIONS (1)
  - Peroneal nerve palsy [Unknown]
